FAERS Safety Report 10237101 (Version 1)
Quarter: 2014Q1

REPORT INFORMATION
  Report Type: Spontaneous
  Country: US (occurrence: None)
  Receive Date: 20140306
  Receipt Date: 20140306
  Transmission Date: 20141002
  Serious: Yes (Other)
  Sender: FDA-Public Use
  Company Number: 163-21880-13010324

PATIENT
  Age: 63 Year
  Sex: Female

DRUGS (4)
  1. REVLIMID [Suspect]
     Indication: PLASMA CELL MYELOMA
     Route: 048
     Dates: start: 20120629
  2. MAGNESIUM (MAGNESIUM) (UNKNOWN) [Concomitant]
  3. CEPHALEXIN (CEFALEXIN) (UNKNOWN) [Concomitant]
  4. PENICILLIN V POTASSIUM (PHENOXYMETHYLPENICILLIN POTASSIUM) (UNKNOWN) [Concomitant]

REACTIONS (1)
  - Stomatitis [None]
